FAERS Safety Report 8935672 (Version 8)
Quarter: 2014Q2

REPORT INFORMATION
  Report Type: Report from Study
  Country: TR (occurrence: TR)
  Receive Date: 20121130
  Receipt Date: 20140411
  Transmission Date: 20141212
  Serious: Yes (Hospitalization, Other)
  Sender: FDA-Public Use
  Company Number: PHHY2012TR109810

PATIENT
  Age: 44 Year
  Sex: Female

DRUGS (4)
  1. TASIGNA [Suspect]
     Indication: CHRONIC MYELOID LEUKAEMIA
     Dosage: 800 MG/DAY
     Route: 048
     Dates: start: 20100701, end: 20121119
  2. TASIGNA [Suspect]
     Dosage: UNK
     Route: 048
     Dates: start: 20121128
  3. DILATREND [Concomitant]
     Indication: CORONARY ARTERY DISEASE
  4. CORASPIN [Concomitant]

REACTIONS (10)
  - Uterine leiomyoma [Recovered/Resolved]
  - Menorrhagia [Recovering/Resolving]
  - Endometrial hyperplasia [Recovered/Resolved]
  - Coronary artery disease [Not Recovered/Not Resolved]
  - Pleural effusion [Recovering/Resolving]
  - Arteriosclerosis [Recovered/Resolved]
  - Blood count abnormal [Not Recovered/Not Resolved]
  - Infection [Not Recovered/Not Resolved]
  - White blood cell count increased [Not Recovered/Not Resolved]
  - Anaemia [Recovered/Resolved]
